FAERS Safety Report 9886211 (Version 1)
Quarter: 2014Q1

REPORT INFORMATION
  Report Type: Spontaneous
  Country: US (occurrence: US)
  Receive Date: 20140210
  Receipt Date: 20140210
  Transmission Date: 20141002
  Serious: No
  Sender: FDA-Public Use
  Company Number: US-TEVA-461283USA

PATIENT
  Age: 23 Year
  Sex: Female
  Weight: 103.06 kg

DRUGS (3)
  1. PARAGARD 380A [Suspect]
     Indication: CONTRACEPTION
     Route: 015
     Dates: start: 201204, end: 20140129
  2. NOVOLOG [Concomitant]
     Indication: TYPE 1 DIABETES MELLITUS
  3. TRAMADOL [Concomitant]
     Indication: PELVIC PAIN

REACTIONS (3)
  - Ovarian cyst [Not Recovered/Not Resolved]
  - Pelvic pain [Not Recovered/Not Resolved]
  - Device expulsion [Recovered/Resolved]
